FAERS Safety Report 20059978 (Version 1)
Quarter: 2021Q4

REPORT INFORMATION
  Report Type: Spontaneous
  Country: BR (occurrence: BR)
  Receive Date: 20211111
  Receipt Date: 20211111
  Transmission Date: 20220304
  Serious: Yes (Death)
  Sender: FDA-Public Use
  Company Number: BR-009507513-2111BRA001333

PATIENT
  Age: 72 Year
  Sex: Male
  Weight: 82 kg

DRUGS (1)
  1. BRIDION [Suspect]
     Active Substance: SUGAMMADEX
     Indication: Neuromuscular blockade reversal
     Dosage: STRENGHT: 100MG/ML; FREQUENCY: 1, SINGLE DOSE
     Dates: start: 20200521, end: 20200521

REACTIONS (1)
  - Bradycardia [Fatal]

NARRATIVE: CASE EVENT DATE: 20200521
